FAERS Safety Report 19856603 (Version 1)
Quarter: 2021Q3

REPORT INFORMATION
  Report Type: Spontaneous
  Country: US (occurrence: US)
  Receive Date: 20210920
  Receipt Date: 20210920
  Transmission Date: 20211014
  Serious: No
  Sender: FDA-Public Use
  Company Number: US-PERRIGO-21US009838

PATIENT
  Age: 78 Year
  Sex: Female
  Weight: 58.96 kg

DRUGS (1)
  1. LOPERAMIDE?SIMETHICONE [Suspect]
     Active Substance: DIMETHICONE\LOPERAMIDE HYDROCHLORIDE
     Indication: PRODUCT USED FOR UNKNOWN INDICATION
     Dosage: UNKNOWN, SINGLE
     Route: 048
     Dates: start: 20210414, end: 20210414

REACTIONS (2)
  - Retching [Recovered/Resolved]
  - Nausea [Recovered/Resolved]

NARRATIVE: CASE EVENT DATE: 20210414
